FAERS Safety Report 8548236-2 (Version None)
Quarter: 2012Q3

REPORT INFORMATION
  Report Type: 
  Country: None (occurrence: None)
  Receive Date: 20120730
  Receipt Date: 20120723
  Transmission Date: 20120928
  Serious: Yes (Other)
  Sender: FDA-Public Use
  Company Number: US-009507513-1207USA009715

PATIENT

DRUGS (3)
  1. AMLODIPINE [Suspect]
     Dosage: 5 MG, UNK
     Route: 048
  2. ZOCOR [Suspect]
     Dosage: 20 MG, UNK
     Route: 048
  3. ASPIRIN [Concomitant]

REACTIONS (6)
  - CHILLS [None]
  - RAYNAUD'S PHENOMENON [None]
  - RENAL IMPAIRMENT [None]
  - NOCTURIA [None]
  - PERIPHERAL COLDNESS [None]
  - FEELING COLD [None]
